APPROVED DRUG PRODUCT: NORETHINDRONE AND MESTRANOL
Active Ingredient: MESTRANOL; NORETHINDRONE
Strength: 0.05MG;1MG
Dosage Form/Route: TABLET;ORAL-21
Application: A070758 | Product #001
Applicant: WATSON LABORATORIES INC
Approved: Jul 1, 1988 | RLD: No | RS: No | Type: DISCN